FAERS Safety Report 17941177 (Version 1)
Quarter: 2020Q2

REPORT INFORMATION
  Report Type: Spontaneous
  Country: GB (occurrence: GB)
  Receive Date: 20200624
  Receipt Date: 20200624
  Transmission Date: 20200714
  Serious: Yes (Other)
  Sender: FDA-Public Use
  Company Number: GB-PFIZER INC-2020242253

PATIENT
  Age: 29 Year
  Sex: Male
  Weight: 90.71 kg

DRUGS (2)
  1. CITALOPRAM [Suspect]
     Active Substance: CITALOPRAM HYDROBROMIDE
     Dosage: 10 MG
     Route: 048
     Dates: start: 20200427, end: 20200526
  2. SERTRALINE HCL [Suspect]
     Active Substance: SERTRALINE HYDROCHLORIDE
     Dosage: 25 MG
     Route: 048
     Dates: start: 20200604, end: 20200605

REACTIONS (1)
  - Panic attack [Recovered/Resolved with Sequelae]

NARRATIVE: CASE EVENT DATE: 20200427
